FAERS Safety Report 6907251-2 (Version None)
Quarter: 2010Q3

REPORT INFORMATION
  Report Type: 
  Country: None (occurrence: None)
  Receive Date: 20100802
  Receipt Date: 20100719
  Transmission Date: 20110219
  Serious: Yes (Other)
  Sender: FDA-Public Use
  Company Number: AUR-APL-2010-01813

PATIENT
  Age: 51 Year
  Sex: Male

DRUGS (5)
  1. BISOPROLOL [Suspect]
     Indication: MYOCARDIAL ISCHAEMIA
     Dosage: 1.25 MG, ORAL
     Route: 048
     Dates: start: 20100617, end: 20100630
  2. ASPIRIN [Concomitant]
  3. DILTIAZEM [Concomitant]
  4. OMEPRAZOLE [Concomitant]
  5. SIMVATATIN [Concomitant]

REACTIONS (3)
  - EXFOLIATIVE RASH [None]
  - PAIN [None]
  - PRURITUS [None]
